APPROVED DRUG PRODUCT: ELCYS
Active Ingredient: CYSTEINE HYDROCHLORIDE
Strength: 2500MG/50ML (50MG/ML)
Dosage Form/Route: SOLUTION;INTRAVENOUS
Application: N210660 | Product #002
Applicant: EXELA PHARMA SCIENCES LLC
Approved: Dec 4, 2023 | RLD: Yes | RS: No | Type: DISCN